FAERS Safety Report 4451820-9 (Version None)
Quarter: 2004Q3

REPORT INFORMATION
  Report Type: 
  Country: None (occurrence: None)
  Receive Date: 20040917
  Receipt Date: 20040817
  Transmission Date: 20050211
  Serious: Yes (Hospitalization)
  Sender: FDA-Public Use
  Company Number: BE-BRISTOL-MYERS SQUIBB COMPANY-12679445

PATIENT
  Age: 66 Year
  Sex: Female

DRUGS (6)
  1. GLUCOVANCE [Suspect]
     Indication: DIABETES MELLITUS
     Route: 048
  2. GLUCOPHAGE [Suspect]
     Indication: DIABETES MELLITUS
     Route: 048
  3. VOLTAREN [Suspect]
     Route: 048
  4. ZOCOR [Suspect]
     Route: 048
  5. CLORAZEPATE DIPOTASSIUM [Suspect]
     Route: 048
  6. FEMOSTON [Suspect]

REACTIONS (1)
  - INTERSTITIAL LUNG DISEASE [None]
